FAERS Safety Report 15530908 (Version 2)
Quarter: 2018Q4

REPORT INFORMATION
  Report Type: Spontaneous
  Country: US (occurrence: US)
  Receive Date: 20181018
  Receipt Date: 20181109
  Transmission Date: 20190205
  Serious: No
  Sender: FDA-Public Use
  Company Number: US-AMGEN-USASP2018144930

PATIENT
  Age: 16 Year
  Sex: Female
  Weight: 74.1 kg

DRUGS (2)
  1. ENBREL [Suspect]
     Active Substance: ETANERCEPT
     Indication: JUVENILE IDIOPATHIC ARTHRITIS
     Dosage: UNK, QWK
     Route: 065
     Dates: start: 201712
  2. METHOTREXATE. [Concomitant]
     Active Substance: METHOTREXATE
     Indication: JUVENILE IDIOPATHIC ARTHRITIS
     Dosage: 15 MG, QWK
     Route: 048
     Dates: start: 201002

REACTIONS (2)
  - Wrong technique in product usage process [Unknown]
  - Fear of injection [Unknown]

NARRATIVE: CASE EVENT DATE: 20180923
